FAERS Safety Report 22324268 (Version 2)
Quarter: 2023Q2

REPORT INFORMATION
  Report Type: Spontaneous
  Country: US (occurrence: US)
  Receive Date: 20230516
  Receipt Date: 20230616
  Transmission Date: 20230721
  Serious: Yes (Other)
  Sender: FDA-Public Use
  Company Number: US-PPDUS-2023ST000734

PATIENT
  Age: 61 Year
  Sex: Female

DRUGS (2)
  1. ORSERDU [Suspect]
     Active Substance: ELACESTRANT
     Indication: Product used for unknown indication
     Route: 048
     Dates: start: 20230321
  2. VITAMIN D3 [Concomitant]
     Active Substance: CHOLECALCIFEROL
     Indication: Product used for unknown indication
     Route: 065

REACTIONS (5)
  - Pleural effusion [Not Recovered/Not Resolved]
  - Disease progression [Not Recovered/Not Resolved]
  - Breast tenderness [Not Recovered/Not Resolved]
  - Macule [Not Recovered/Not Resolved]
  - Fatigue [Not Recovered/Not Resolved]
